FAERS Safety Report 15561205 (Version 1)
Quarter: 2018Q4

REPORT INFORMATION
  Report Type: Spontaneous
  Country: US (occurrence: US)
  Receive Date: 20181024
  Receipt Date: 20181024
  Transmission Date: 20190205
  Serious: No
  Sender: FDA-Public Use
  Company Number: None

PATIENT
  Age: 35 Year
  Sex: Male
  Weight: 63.6 kg

DRUGS (1)
  1. BUPRENORPHINE/NALOXONE [Suspect]
     Active Substance: BUPRENORPHINE\NALOXONE
     Dosage: ?          OTHER DOSE:MG;?
     Route: 048
     Dates: start: 20160713, end: 20160809

REACTIONS (2)
  - Condition aggravated [None]
  - Drug withdrawal syndrome [None]

NARRATIVE: CASE EVENT DATE: 20160729
